FAERS Safety Report 8089293-X (Version None)
Quarter: 2012Q1

REPORT INFORMATION
  Report Type: 
  Country: None (occurrence: None)
  Receive Date: 20120128
  Receipt Date: 20110814
  Transmission Date: 20120608
  Serious: No
  Sender: FDA-Public Use
  Company Number: US-ABBOTT-11P-163-0721253-00

PATIENT
  Sex: Male

DRUGS (24)
  1. BETAMETHASONE [Concomitant]
     Indication: PSORIASIS
     Dosage: DAILY
     Route: 061
  2. PRILOSEC [Concomitant]
     Indication: GASTROOESOPHAGEAL REFLUX DISEASE
  3. TOPROL-XL [Concomitant]
     Indication: HYPERTENSION
     Dosage: 100MG XL
  4. PROAIR HFA [Concomitant]
     Indication: EMPHYSEMA
  5. ASPIRIN [Concomitant]
     Indication: ANTICOAGULANT THERAPY
  6. ADVAIR DISKUS 100/50 [Concomitant]
     Indication: PRODUCT USED FOR UNKNOWN INDICATION
     Dosage: 250/50
  7. PEPCID [Concomitant]
     Indication: GASTROOESOPHAGEAL REFLUX DISEASE
  8. LIPITOR [Concomitant]
     Indication: HYPERTENSION
  9. XANAX [Concomitant]
     Indication: ANXIETY
     Dosage: AS NEEDED
  10. PRISTIQ [Concomitant]
     Indication: BIPOLAR DISORDER
  11. NORVASC [Concomitant]
     Indication: HYPERTENSION
  12. HUMIRA [Suspect]
     Indication: PSORIASIS
     Dosage: DAY ONE
     Route: 058
     Dates: start: 20110415, end: 20110415
  13. PERCOCET [Concomitant]
     Indication: INTERVERTEBRAL DISC DISORDER
  14. SPIRIVA [Concomitant]
     Indication: EMPHYSEMA
  15. PLAVIX [Concomitant]
     Indication: BLOOD CHOLESTEROL
  16. VICTOZA [Concomitant]
     Indication: GLUCOSE TOLERANCE IMPAIRED
     Route: 050
  17. PLAVIX [Concomitant]
     Indication: MYOCARDIAL INFARCTION
  18. LIPITOR [Concomitant]
     Indication: BLOOD CHOLESTEROL INCREASED
  19. PERCOCET [Concomitant]
     Indication: PAIN
     Dosage: 10MG EVERY 6 HOURS AS NEEDED
  20. PERCOCET [Concomitant]
     Indication: NERVE COMPRESSION
  21. XOPENEX [Concomitant]
     Indication: EMPHYSEMA
     Dosage: NEBULIZER
  22. HUMIRA [Suspect]
  23. LIRAGLUTIDE [Concomitant]
     Indication: DIABETES MELLITUS
     Route: 050
  24. CPAP [Concomitant]
     Indication: SLEEP APNOEA SYNDROME

REACTIONS (4)
  - PRURITUS [None]
  - PSORIASIS [None]
  - DEVICE MALFUNCTION [None]
  - ERYTHEMA [None]
